FAERS Safety Report 23105609 (Version 1)
Quarter: 2023Q4

REPORT INFORMATION
  Report Type: Spontaneous
  Country: AE (occurrence: AE)
  Receive Date: 20231025
  Receipt Date: 20231025
  Transmission Date: 20240109
  Serious: Yes (Hospitalization, Other)
  Sender: FDA-Public Use
  Company Number: AE-PFIZER INC-PV202300173980

PATIENT
  Age: 71 Year
  Sex: Female
  Weight: 54 kg

DRUGS (3)
  1. IBRANCE [Suspect]
     Active Substance: PALBOCICLIB
     Indication: Breast cancer metastatic
     Dosage: 125 MG
     Dates: start: 201809
  2. ARIMIDEX [Suspect]
     Active Substance: ANASTROZOLE
     Indication: Breast cancer metastatic
     Dosage: UNK
     Dates: start: 201809
  3. FEMARA [Suspect]
     Active Substance: LETROZOLE

REACTIONS (7)
  - Pneumonia [Unknown]
  - Asthma [Unknown]
  - Pleural effusion [Unknown]
  - COVID-19 [Unknown]
  - Anaemia [Unknown]
  - Neoplasm progression [Unknown]
  - Hypophagia [Unknown]

NARRATIVE: CASE EVENT DATE: 20190601
